FAERS Safety Report 8516655-6 (Version None)
Quarter: 2012Q3

REPORT INFORMATION
  Report Type: 
  Country: None (occurrence: None)
  Receive Date: 20120706
  Receipt Date: 20120624
  Transmission Date: 20120928
  Serious: Yes (Other)
  Sender: FDA-Public Use
  Company Number: 2012P1044581

PATIENT
  Age: 82 Year
  Sex: Female
  Weight: 40.8237 kg

DRUGS (5)
  1. TOPROL-XL [Concomitant]
  2. VITAMIN TAB [Concomitant]
  3. PERCOCET [Concomitant]
  4. FENTANYL [Suspect]
     Indication: PAIN
     Dosage: 1 PATCH;Q72H;TDER
     Route: 062
     Dates: start: 20100601
  5. LASIX [Concomitant]

REACTIONS (6)
  - WRONG TECHNIQUE IN DRUG USAGE PROCESS [None]
  - DYSPNOEA [None]
  - FALL [None]
  - CONTUSION [None]
  - HEAD INJURY [None]
  - ROTATOR CUFF SYNDROME [None]
